APPROVED DRUG PRODUCT: NEOMYCIN SULFATE
Active Ingredient: NEOMYCIN SULFATE
Strength: 500MG
Dosage Form/Route: TABLET;ORAL
Application: A060304 | Product #001 | TE Code: AA
Applicant: TEVA PHARMACEUTICALS USA INC
Approved: Approved Prior to Jan 1, 1982 | RLD: No | RS: Yes | Type: RX